FAERS Safety Report 8810221 (Version 2)
Quarter: 2012Q4

REPORT INFORMATION
  Report Type: 
  Country: US (occurrence: US)
  Receive Date: 20120926
  Receipt Date: 20121210
  Transmission Date: 20130627
  Serious: No
  Sender: FDA-Public Use
  Company Number: US-009507513-1209USA006406

PATIENT
  Age: 53 None
  Sex: Male

DRUGS (3)
  1. PEGINTRON [Suspect]
     Indication: HEPATITIS C
     Dosage: UNK
     Dates: start: 20120817
  2. REBETOL [Suspect]
     Indication: HEPATITIS C
     Dosage: UNK
     Dates: start: 20120817
  3. VICTRELIS [Suspect]
     Dosage: UNK
     Dates: start: 20120914

REACTIONS (11)
  - Weight increased [Unknown]
  - Malaise [Unknown]
  - Injection site rash [Unknown]
  - Abdominal pain lower [Unknown]
  - Fatigue [Unknown]
  - Cough [Recovered/Resolved]
  - Haematemesis [Recovered/Resolved]
  - Dyspnoea [Unknown]
  - Rash [Unknown]
  - Rash pruritic [Unknown]
  - Feeling abnormal [Unknown]
